FAERS Safety Report 22076786 (Version 1)
Quarter: 2023Q1

REPORT INFORMATION
  Report Type: Spontaneous
  Country: JP (occurrence: JP)
  Receive Date: 20230309
  Receipt Date: 20230309
  Transmission Date: 20230417
  Serious: Yes (Other)
  Sender: FDA-Public Use
  Company Number: JP-KERYX BIOPHARMACEUTICALS INC.-JP-AKEB-23-000514

PATIENT

DRUGS (3)
  1. FERRIC CITRATE ANHYDROUS [Suspect]
     Active Substance: FERRIC CITRATE ANHYDROUS
     Indication: Product used for unknown indication
     Dosage: 500 MILLIGRAM, QD
     Route: 048
     Dates: end: 20221013
  2. FERRIC CITRATE ANHYDROUS [Suspect]
     Active Substance: FERRIC CITRATE ANHYDROUS
     Dosage: 250 MILLIGRAM, QD
     Route: 048
     Dates: start: 20221014, end: 20230113
  3. ENARODUSTAT [Suspect]
     Active Substance: ENARODUSTAT
     Indication: Nephrogenic anaemia
     Dosage: 2 MILLIGRAM, QD
     Route: 048
     Dates: start: 20220729

REACTIONS (2)
  - Spinal compression fracture [Recovering/Resolving]
  - COVID-19 [Recovered/Resolved]

NARRATIVE: CASE EVENT DATE: 20221001
